FAERS Safety Report 17880276 (Version 2)
Quarter: 2020Q4

REPORT INFORMATION
  Report Type: Spontaneous
  Country: RU (occurrence: RU)
  Receive Date: 20200610
  Receipt Date: 20201118
  Transmission Date: 20210113
  Serious: Yes (Other)
  Sender: FDA-Public Use
  Company Number: RU-ROCHE-2617410

PATIENT
  Age: 61 Year
  Sex: Female

DRUGS (4)
  1. CARBOPLATIN. [Suspect]
     Active Substance: CARBOPLATIN
     Indication: HER2 POSITIVE BREAST CANCER
     Dosage: AUC 6 1 TIME PER 3 WEEKS
     Route: 042
     Dates: start: 20200128, end: 20200513
  2. DOCETAXEL. [Suspect]
     Active Substance: DOCETAXEL
     Indication: HER2 POSITIVE BREAST CANCER
     Route: 042
     Dates: start: 20200128, end: 20200513
  3. TRASTUZUMAB. [Suspect]
     Active Substance: TRASTUZUMAB
     Indication: HER2 POSITIVE BREAST CANCER
     Dosage: LOADING DOSE 8 MG/KG
     Route: 041
     Dates: start: 20200128, end: 20200513
  4. PERTUZUMAB. [Suspect]
     Active Substance: PERTUZUMAB
     Indication: HER2 POSITIVE BREAST CANCER
     Dosage: LOADING DOSE 420 MG
     Route: 042
     Dates: start: 20200128, end: 20200513

REACTIONS (6)
  - Asthenia [Unknown]
  - Neutropenia [Unknown]
  - Haematotoxicity [Unknown]
  - Irritability [Unknown]
  - Cardiac disorder [Unknown]
  - Diarrhoea [Unknown]
